FAERS Safety Report 11800928 (Version 1)
Quarter: 2015Q4

REPORT INFORMATION
  Report Type: Spontaneous
  Country: FR (occurrence: FR)
  Receive Date: 20151204
  Receipt Date: 20151204
  Transmission Date: 20160305
  Serious: Yes (Life-Threatening)
  Sender: FDA-Public Use
  Company Number: FR-009507513-1512FRA001090

PATIENT
  Age: 18 Year
  Sex: Female

DRUGS (7)
  1. ESMERON [Suspect]
     Active Substance: ROCURONIUM BROMIDE
     Dosage: 50 MG, QD, STRENGTH: 50MG/5ML
     Route: 042
     Dates: start: 20151020, end: 20151020
  2. PROPOFOL FRESENIUS [Suspect]
     Active Substance: PROPOFOL
     Dosage: UNK
     Route: 042
     Dates: start: 20151020, end: 20151020
  3. SUFENTANIL [Suspect]
     Active Substance: SUFENTANIL
     Dosage: STRENGTH: 50 MICROGRAM/ML
     Route: 042
     Dates: start: 20151020, end: 20151020
  4. CELOCURINE [Suspect]
     Active Substance: SUCCINYLCHOLINE CHLORIDE
     Dosage: 80 MG, QD
     Route: 042
     Dates: start: 20151020, end: 20151020
  5. KETAMINE [Suspect]
     Active Substance: KETAMINE
     Dosage: TOTAL DAILY DOSE: 20 MG
     Route: 042
     Dates: start: 20151020, end: 20151020
  6. DEXAMETHASONE PHOSPHATE [Suspect]
     Active Substance: DEXAMETHASONE PHOSPHATE
     Dosage: TOTAL DAILY DOSE: 8MG
     Route: 042
     Dates: start: 20151020, end: 20151020
  7. SUFENTANIL [Suspect]
     Active Substance: SUFENTANIL
     Dosage: STRENGTH: 50 MICROGRAM/ML
     Route: 042
     Dates: start: 20151020, end: 20151020

REACTIONS (4)
  - Bronchospasm [Recovered/Resolved]
  - Anaphylactic shock [Recovered/Resolved]
  - Oxygen saturation decreased [Recovered/Resolved]
  - Rash [Recovered/Resolved]

NARRATIVE: CASE EVENT DATE: 20151020
